FAERS Safety Report 12441483 (Version 2)
Quarter: 2016Q2

REPORT INFORMATION
  Report Type: Spontaneous
  Country: US (occurrence: US)
  Receive Date: 20160607
  Receipt Date: 20160623
  Transmission Date: 20160815
  Serious: No
  Sender: FDA-Public Use
  Company Number: US-PFIZER INC-2016283807

PATIENT
  Age: 57 Year
  Sex: Female
  Weight: 88 kg

DRUGS (1)
  1. LYRICA [Suspect]
     Active Substance: PREGABALIN
     Dosage: 75 MG, AT BEDTIME
     Route: 048
     Dates: start: 20160513

REACTIONS (9)
  - Tinnitus [Unknown]
  - Condition aggravated [Unknown]
  - Thirst [Unknown]
  - Intentional product misuse [Unknown]
  - Vision blurred [Unknown]
  - Joint swelling [Not Recovered/Not Resolved]
  - Dizziness [Unknown]
  - Headache [Unknown]
  - Chest discomfort [Unknown]

NARRATIVE: CASE EVENT DATE: 201605
